FAERS Safety Report 24774220 (Version 2)
Quarter: 2025Q1

REPORT INFORMATION
  Report Type: Report from Study
  Country: US (occurrence: US)
  Receive Date: 20241225
  Receipt Date: 20250110
  Transmission Date: 20250409
  Serious: Yes (Other)
  Sender: REGENERON
  Company Number: US-REGENERON PHARMACEUTICALS, INC.-2024-173906

PATIENT
  Sex: Female

DRUGS (1)
  1. CEMIPLIMAB [Suspect]
     Active Substance: CEMIPLIMAB
     Indication: Lung neoplasm malignant
     Dosage: 350 MG, Q3W
     Route: 042
     Dates: start: 20241111

REACTIONS (5)
  - Anxiety [Unknown]
  - Malaise [Unknown]
  - Feeling abnormal [Unknown]
  - Fatigue [Unknown]
  - Abdominal discomfort [Unknown]
